FAERS Safety Report 26131167 (Version 1)
Quarter: 2025Q4

REPORT INFORMATION
  Report Type: Report from Study
  Country: US (occurrence: US)
  Receive Date: 20251208
  Receipt Date: 20251208
  Transmission Date: 20260118
  Serious: Yes (Death, Other)
  Sender: GILEAD
  Company Number: US-GILEAD-2025-0739892

PATIENT
  Sex: Male

DRUGS (2)
  1. AZTREONAM LYSINE [Suspect]
     Active Substance: AZTREONAM LYSINE
     Indication: Burkholderia pseudomallei infection
     Dosage: 75 MG TAKEN 28 DAYS ON AND 28 DAYS OFF. QUANTITY OF 84.
     Route: 065
  2. AZTREONAM LYSINE [Suspect]
     Active Substance: AZTREONAM LYSINE
     Indication: Bronchiectasis

REACTIONS (2)
  - Death [Fatal]
  - Product use in unapproved indication [Not Recovered/Not Resolved]
